FAERS Safety Report 8001219-3 (Version None)
Quarter: 2011Q4

REPORT INFORMATION
  Report Type: 
  Country: None (occurrence: None)
  Receive Date: 20111219
  Receipt Date: 20111205
  Transmission Date: 20120403
  Serious: Yes (Death, Hospitalization, Disabling, Other)
  Sender: FDA-Public Use
  Company Number: 2011MA017231

PATIENT
  Sex: Male

DRUGS (13)
  1. IMDUR [Concomitant]
  2. AMIODARONE [Concomitant]
  3. DUONEB [Concomitant]
  4. LASIX [Concomitant]
  5. COREG [Concomitant]
  6. INSULIN [Concomitant]
  7. BACTRIM [Concomitant]
  8. LACTINEX [Concomitant]
  9. CALCIUM ACETATE [Concomitant]
  10. DIGOXIN [Suspect]
     Indication: PRODUCT USED FOR UNKNOWN INDICATION
     Dosage: .25 MG;QD;PO
     Route: 048
     Dates: start: 20060207, end: 20080114
  11. HYDRALAZINE HCL [Concomitant]
  12. IRON [Concomitant]
  13. LEVAQUIN [Concomitant]

REACTIONS (37)
  - VENTRICULAR TACHYCARDIA [None]
  - PNEUMONIA [None]
  - CONGESTIVE CARDIOMYOPATHY [None]
  - CARDIAC FAILURE CONGESTIVE [None]
  - IMMOBILE [None]
  - TENDONITIS [None]
  - HAEMORRHAGE [None]
  - HAEMATURIA [None]
  - SUTURE INSERTION [None]
  - SCROTAL ABSCESS [None]
  - SEPSIS [None]
  - TOXICITY TO VARIOUS AGENTS [None]
  - ISCHAEMIA [None]
  - OXYGEN SATURATION DECREASED [None]
  - CORONARY ARTERY DISEASE [None]
  - DEVICE RELATED INFECTION [None]
  - FOOT OPERATION [None]
  - ABDOMINAL DISTENSION [None]
  - DYSURIA [None]
  - POLLAKIURIA [None]
  - WOUND INFECTION [None]
  - VOMITING [None]
  - DYSPNOEA [None]
  - ABDOMINAL PAIN [None]
  - BONE DISORDER [None]
  - METASTATIC NEOPLASM [None]
  - URINARY TRACT OBSTRUCTION [None]
  - NAUSEA [None]
  - URINARY TRACT INFECTION [None]
  - CONDITION AGGRAVATED [None]
  - SOFT TISSUE INFLAMMATION [None]
  - DYSSTASIA [None]
  - CHEST PAIN [None]
  - PALPITATIONS [None]
  - GENERAL PHYSICAL CONDITION ABNORMAL [None]
  - ASTHENIA [None]
  - OSTEOSCLEROSIS [None]
